FAERS Safety Report 7919737-2 (Version None)
Quarter: 2011Q4

REPORT INFORMATION
  Report Type: 
  Country: None (occurrence: None)
  Receive Date: 20111115
  Receipt Date: 20111102
  Transmission Date: 20120403
  Serious: Yes (Hospitalization)
  Sender: FDA-Public Use
  Company Number: 2011-4029

PATIENT
  Age: 66 Year
  Sex: Male

DRUGS (5)
  1. SOMAVERT [Concomitant]
  2. SOMATULINE AUTO SOLUTION (SOMATULINE SR) (LANREOTIDE) (LANREOTIDE ACET [Suspect]
     Indication: ACROMEGALY
     Dosage: 90MG (90 MG, 1 IN 1 M), INTRAMUSCULAR
     Route: 030
     Dates: start: 20090223
  3. LISINOPRIL [Concomitant]
  4. ANDROGEL [Concomitant]
  5. DOSTINEX [Concomitant]

REACTIONS (2)
  - RECTAL HAEMORRHAGE [None]
  - DIVERTICULUM [None]
